FAERS Safety Report 11752114 (Version 2)
Quarter: 2015Q4

REPORT INFORMATION
  Report Type: Spontaneous
  Country: US (occurrence: US)
  Receive Date: 20151118
  Receipt Date: 20151228
  Transmission Date: 20160304
  Serious: Yes (Other)
  Sender: FDA-Public Use
  Company Number: US-TAIHO ONCOLOGY INC-EU-2015-00226

PATIENT
  Age: 78 Year
  Sex: Male

DRUGS (18)
  1. LINUM USITATISSIMUM SEED OIL [Concomitant]
     Dosage: NI
  2. IMBRUVICA [Concomitant]
     Active Substance: IBRUTINIB
     Dosage: NI
  3. VYTORIN [Concomitant]
     Active Substance: EZETIMIBE\SIMVASTATIN
     Dosage: NI
  4. NEURONTIN [Concomitant]
     Active Substance: GABAPENTIN
     Dosage: NI
  5. ZANTAC [Concomitant]
     Active Substance: RANITIDINE HYDROCHLORIDE
     Dosage: NI
  6. MIRALAX [Concomitant]
     Active Substance: POLYETHYLENE GLYCOL 3350
     Dosage: NI
  7. XANAX [Concomitant]
     Active Substance: ALPRAZOLAM
     Dosage: NI
  8. PLANTAGO AFRA [Concomitant]
     Active Substance: HERBALS
     Dosage: NI
  9. UBIDECARENONE [Concomitant]
     Active Substance: UBIDECARENONE
     Dosage: NI
  10. ASTELIN [Concomitant]
     Active Substance: AZELASTINE HYDROCHLORIDE
     Dosage: NI
  11. LEXAPRO [Concomitant]
     Active Substance: ESCITALOPRAM OXALATE
     Dosage: NI
  12. TAMSULOSIN [Concomitant]
     Active Substance: TAMSULOSIN
     Dosage: NI
  13. COLESTIPOL [Concomitant]
     Active Substance: COLESTIPOL
     Dosage: NI
  14. ALTACE [Concomitant]
     Active Substance: RAMIPRIL
     Dosage: NI
  15. ACETYLSALICYLIC ACID [Concomitant]
     Active Substance: ASPIRIN
     Dosage: NI
  16. LONSURF [Suspect]
     Active Substance: TIPIRACIL HYDROCHLORIDE\TRIFLURIDINE
     Dosage: FREQUENCY, DOSE AND CYCLE NUMBER UNKNOWN
     Route: 065
  17. LACTOBACILLUS ACIDOPHILUS [Concomitant]
     Active Substance: LACTOBACILLUS ACIDOPHILUS
     Dosage: NI
  18. NEXIUM [Concomitant]
     Active Substance: ESOMEPRAZOLE MAGNESIUM
     Dosage: NI

REACTIONS (9)
  - Cardiac disorder [Unknown]
  - Diarrhoea [Unknown]
  - Neuropathy peripheral [Unknown]
  - Haemorrhoidal haemorrhage [None]
  - Back pain [Unknown]
  - Haemorrhoids [Unknown]
  - Pelvic floor muscle weakness [Unknown]
  - Peripheral arterial occlusive disease [Unknown]
  - Painful defaecation [None]

NARRATIVE: CASE EVENT DATE: 20151106
